FAERS Safety Report 6614247-7 (Version None)
Quarter: 2010Q1

REPORT INFORMATION
  Report Type: 
  Country: None (occurrence: None)
  Receive Date: 20100304
  Receipt Date: 20100219
  Transmission Date: 20100710
  Serious: Yes (Other)
  Sender: FDA-Public Use
  Company Number: CA-BRISTOL-MYERS SQUIBB COMPANY-14780902

PATIENT
  Age: 52 Year
  Sex: Male

DRUGS (18)
  1. STAVUDINE [Suspect]
     Indication: HIV INFECTION
     Route: 065
  2. DIDANOSINE [Suspect]
     Indication: HIV INFECTION
     Route: 065
  3. SUSTIVA [Suspect]
     Indication: HIV INFECTION
     Route: 048
  4. ZIDOVUDINE [Suspect]
     Indication: HIV INFECTION
     Route: 065
  5. LAMIVUDINE [Suspect]
     Indication: HIV INFECTION
     Route: 065
  6. INDINAVIR [Suspect]
     Indication: HIV INFECTION
     Route: 048
  7. RITONAVIR [Suspect]
     Indication: HIV INFECTION
     Route: 065
  8. SAQUINAVIR [Suspect]
     Indication: HIV INFECTION
     Route: 048
  9. ABACAVIR [Suspect]
     Indication: HIV INFECTION
     Route: 065
  10. LOPINAVIR [Suspect]
     Indication: HIV INFECTION
     Route: 065
  11. NEVIRAPINE [Suspect]
     Indication: HIV INFECTION
     Route: 065
  12. ENFUVIRTIDE [Suspect]
     Indication: HIV INFECTION
  13. TENOFOVIR [Suspect]
     Indication: HIV INFECTION
     Route: 065
  14. DARUNAVIR [Suspect]
     Indication: HIV INFECTION
     Route: 065
  15. DELAVIRDINE [Suspect]
     Indication: HIV INFECTION
     Route: 065
  16. RALTEGRAVIR [Suspect]
     Indication: HIV INFECTION
     Dosage: RALTEGRAVIR 400 MG TABS
     Route: 048
  17. ETRAVIRINE [Suspect]
     Indication: HIV INFECTION
     Route: 065
  18. VIRACEPT [Suspect]
     Route: 065

REACTIONS (3)
  - LIPODYSTROPHY ACQUIRED [None]
  - MITOCHONDRIAL TOXICITY [None]
  - PROGRESSIVE EXTERNAL OPHTHALMOPLEGIA [None]
